FAERS Safety Report 6570529-9 (Version None)
Quarter: 2010Q1

REPORT INFORMATION
  Report Type: 
  Country: None (occurrence: None)
  Receive Date: 20100204
  Receipt Date: 20100201
  Transmission Date: 20100710
  Serious: Yes (Hospitalization, Disabling, Other)
  Sender: FDA-Public Use
  Company Number: US-MERCK-0505USA02366

PATIENT
  Age: 70 Year
  Sex: Female
  Weight: 62 kg

DRUGS (9)
  1. FOSAMAX [Suspect]
     Indication: OSTEOPOROSIS
     Route: 048
     Dates: start: 20010105, end: 20050303
  2. FOSAMAX [Suspect]
     Route: 048
     Dates: start: 19990202, end: 20010101
  3. FOSAMAX [Suspect]
     Route: 048
     Dates: start: 19950101, end: 20050101
  4. FOSAMAX [Suspect]
     Route: 048
     Dates: start: 19960101, end: 20050101
  5. FOSAMAX [Suspect]
     Route: 048
     Dates: start: 19960101, end: 20050101
  6. SYNTHROID [Concomitant]
     Indication: HYPOTHYROIDISM
     Route: 048
  7. LIPITOR [Concomitant]
     Indication: BLOOD CHOLESTEROL INCREASED
     Route: 048
  8. EVISTA [Concomitant]
     Indication: OSTEOPOROSIS
     Route: 048
  9. BEXTRA [Concomitant]
     Indication: ARTHRITIS
     Route: 048

REACTIONS (30)
  - ABDOMINAL PAIN [None]
  - ANAEMIA OF CHRONIC DISEASE [None]
  - BACK DISORDER [None]
  - BASAL CELL CARCINOMA [None]
  - BURSITIS [None]
  - COUGH [None]
  - DEAFNESS [None]
  - DISTURBANCE IN ATTENTION [None]
  - DRUG HYPERSENSITIVITY [None]
  - FOOT FRACTURE [None]
  - GINGIVAL INFECTION [None]
  - HYPERLIPIDAEMIA [None]
  - HYPERTENSION [None]
  - IMPAIRED HEALING [None]
  - INFECTION [None]
  - IRRITABLE BOWEL SYNDROME [None]
  - LOWER LIMB FRACTURE [None]
  - MOUTH ULCERATION [None]
  - MUSCLE SPASMS [None]
  - MUSCULOSKELETAL CHEST PAIN [None]
  - OSTEOMYELITIS [None]
  - OSTEONECROSIS [None]
  - PANCREATITIS [None]
  - ROTATOR CUFF SYNDROME [None]
  - SCIATICA [None]
  - SKIN CANCER [None]
  - SLEEP DISORDER [None]
  - SQUAMOUS CELL CARCINOMA [None]
  - STRESS URINARY INCONTINENCE [None]
  - URINARY TRACT INFECTION [None]
